FAERS Safety Report 5311830-6 (Version None)
Quarter: 2007Q2

REPORT INFORMATION
  Report Type: 
  Country: None (occurrence: None)
  Receive Date: 20070427
  Receipt Date: 20070427
  Transmission Date: 20071010
  Serious: Yes (Life-Threatening, Hospitalization)
  Sender: FDA-Public Use
  Company Number: None

PATIENT
  Sex: Male
  Weight: 56.246 kg

DRUGS (2)
  1. SPIRONOLACTONE [Suspect]
     Indication: CARDIAC FAILURE CONGESTIVE
     Dosage: 12.5 MG DAILY PO
     Route: 048
     Dates: start: 20050929, end: 20070301
  2. SPIRONOLACTONE [Suspect]
     Indication: HYPERTENSION
     Dosage: 12.5 MG DAILY PO
     Route: 048
     Dates: start: 20050929, end: 20070301

REACTIONS (6)
  - BRADYCARDIA [None]
  - HYPERKALAEMIA [None]
  - NODAL RHYTHM [None]
  - PRESYNCOPE [None]
  - RENAL FAILURE ACUTE [None]
  - VISION BLURRED [None]
